FAERS Safety Report 6162546-8 (Version None)
Quarter: 2009Q2

REPORT INFORMATION
  Report Type: 
  Country: None (occurrence: None)
  Receive Date: 20090417
  Receipt Date: 20090407
  Transmission Date: 20091009
  Serious: Yes (Hospitalization)
  Sender: FDA-Public Use
  Company Number: VISP-NO-0904S-0168

PATIENT
  Age: 41 Year
  Sex: Male

DRUGS (3)
  1. VISIPAQUE [Suspect]
     Indication: AORTIC DISSECTION
     Dosage: SINGLE DOSE, I.A.
     Route: 013
     Dates: start: 20080101, end: 20080101
  2. CEFOTAXIME [Concomitant]
  3. CIPROFLOXACIN [Concomitant]

REACTIONS (2)
  - ACUTE GENERALISED EXANTHEMATOUS PUSTULOSIS [None]
  - HAEMODIALYSIS [None]
